FAERS Safety Report 24025311 (Version 1)
Quarter: 2024Q2

REPORT INFORMATION
  Report Type: Spontaneous
  Country: PT (occurrence: PT)
  Receive Date: 20240628
  Receipt Date: 20240628
  Transmission Date: 20240716
  Serious: No
  Sender: FDA-Public Use
  Company Number: None

PATIENT
  Age: 54 Year
  Sex: Male
  Weight: 107.0 kg

DRUGS (3)
  1. ALECENSA [Suspect]
     Active Substance: ALECTINIB HYDROCHLORIDE
     Indication: Lung neoplasm malignant
     Route: 065
     Dates: start: 20210615
  2. TADALAFIL [Concomitant]
     Active Substance: TADALAFIL
  3. LACTULOSE [Concomitant]
     Active Substance: LACTULOSE

REACTIONS (1)
  - Eosinophilia [Recovered/Resolved]

NARRATIVE: CASE EVENT DATE: 20210712
